FAERS Safety Report 15449686 (Version 2)
Quarter: 2018Q4

REPORT INFORMATION
  Report Type: Spontaneous
  Country: US (occurrence: US)
  Receive Date: 20181001
  Receipt Date: 20181109
  Transmission Date: 20190204
  Serious: No
  Sender: FDA-Public Use
  Company Number: US-JNJFOC-20180918889

PATIENT
  Age: 44 Year
  Sex: Female
  Weight: 52.16 kg

DRUGS (1)
  1. STELARA [Suspect]
     Active Substance: USTEKINUMAB
     Indication: CROHN^S DISEASE
     Route: 058
     Dates: start: 201701

REACTIONS (3)
  - Product dose omission [Unknown]
  - Pyrexia [Unknown]
  - Product leakage [Unknown]

NARRATIVE: CASE EVENT DATE: 201809
